FAERS Safety Report 10249156 (Version 1)
Quarter: 2014Q2

REPORT INFORMATION
  Report Type: Spontaneous
  Country: US (occurrence: None)
  Receive Date: 20140618
  Receipt Date: 20140618
  Transmission Date: 20141212
  Serious: Yes (Hospitalization, Disabling)
  Sender: FDA-Public Use
  Company Number: None

PATIENT
  Age: 83 Year
  Sex: Male
  Weight: 79 kg

DRUGS (2)
  1. IPILIMUMAB [Suspect]
     Indication: MELANOMA RECURRENT
     Dosage: 3 MG/KG EVERY 3 WEEKS X4 INTRAVENOUS
     Route: 042
  2. RADIATION THERAPY [Concomitant]

REACTIONS (3)
  - Blindness unilateral [None]
  - Fatigue [None]
  - Pyrexia [None]
